FAERS Safety Report 4911057-3 (Version None)
Quarter: 2006Q1

REPORT INFORMATION
  Report Type: 
  Country: None (occurrence: None)
  Receive Date: 20060214
  Receipt Date: 20050823
  Transmission Date: 20060701
  Serious: Yes (Hospitalization, Other)
  Sender: FDA-Public Use
  Company Number: US-MERCK-0508USA03913

PATIENT
  Age: 58 Year
  Sex: Male
  Weight: 118 kg

DRUGS (12)
  1. VIOXX [Suspect]
     Indication: HYPOAESTHESIA
     Route: 048
     Dates: start: 20020113, end: 20020617
  2. DIOVAN [Concomitant]
     Indication: HYPERTENSION
     Route: 065
  3. VIOXX [Suspect]
     Indication: MUSCULOSKELETAL STIFFNESS
     Route: 048
     Dates: start: 20020113, end: 20020617
  4. HYDROCHLOROTHIAZIDE [Concomitant]
     Indication: HYPERTENSION
     Route: 065
  5. ASPIRIN [Concomitant]
     Indication: PROPHYLAXIS
     Route: 065
     Dates: start: 19980101
  6. ZOCOR [Concomitant]
     Indication: BLOOD CHOLESTEROL INCREASED
     Route: 048
  7. NEURONTIN [Concomitant]
     Route: 065
  8. DARVOCET-N 50 [Concomitant]
     Route: 065
  9. BACLOFEN [Concomitant]
     Route: 065
  10. AVANDIA [Concomitant]
     Indication: DIABETES MELLITUS
     Route: 065
  11. METFORMIN [Concomitant]
     Route: 065
  12. ALLEGRA [Concomitant]
     Route: 065

REACTIONS (3)
  - BALANCE DISORDER [None]
  - CARDIAC DISORDER [None]
  - MYOCARDIAL INFARCTION [None]
